FAERS Safety Report 8863262 (Version 1)
Quarter: 2012Q4

REPORT INFORMATION
  Report Type: 
  Country: US (occurrence: US)
  Receive Date: 20121025
  Receipt Date: 20121025
  Transmission Date: 20130627
  Serious: No
  Sender: FDA-Public Use
  Company Number: US-JNJFOC-20121008871

PATIENT
  Sex: Male

DRUGS (4)
  1. SANDOZ FENTANYL TRANSDERMAL SYSTEM [Suspect]
     Indication: PAIN
     Dosage: 1 1/2 patches 12.5   6.25 = 18.75
     Route: 062
     Dates: start: 201210, end: 201210
  2. SANDOZ FENTANYL TRANSDERMAL SYSTEM [Suspect]
     Indication: PAIN
     Route: 062
     Dates: start: 2012
  3. FENTANYL TRANSDEMAL SYSTEM [Suspect]
     Indication: PAIN
     Route: 062
  4. NORCO [Concomitant]
     Indication: BREAKTHROUGH PAIN
     Dosage: 10 MG/325 MG
     Route: 048

REACTIONS (3)
  - Depression [Recovered/Resolved]
  - Wrong technique in drug usage process [Recovered/Resolved]
  - Feeling abnormal [Recovered/Resolved]
